FAERS Safety Report 4751752-2 (Version None)
Quarter: 2005Q3

REPORT INFORMATION
  Report Type: 
  Country: None (occurrence: None)
  Receive Date: 20050822
  Receipt Date: 20050822
  Transmission Date: 20060218
  Serious: Yes (Other)
  Sender: FDA-Public Use
  Company Number: None

PATIENT
  Age: 73 Year
  Sex: Female
  Weight: 82.1011 kg

DRUGS (1)
  1. FENTANYL [Suspect]
     Indication: BACK PAIN
     Dosage: 1 PATCH    48 HOURS   TRANSDERMA
     Route: 062
     Dates: start: 20050719, end: 20050810

REACTIONS (5)
  - COLD SWEAT [None]
  - DRUG INEFFECTIVE [None]
  - FEELING HOT [None]
  - NAUSEA [None]
  - PHARMACEUTICAL PRODUCT COMPLAINT [None]
